FAERS Safety Report 5843684-3 (Version None)
Quarter: 2008Q3

REPORT INFORMATION
  Report Type: 
  Country: None (occurrence: None)
  Receive Date: 20080812
  Receipt Date: 20080812
  Transmission Date: 20090109
  Serious: Yes (Hospitalization)
  Sender: FDA-Public Use
  Company Number: None

PATIENT
  Age: 66 Year
  Sex: Male
  Weight: 81.6475 kg

DRUGS (10)
  1. HYCAMTIN [Suspect]
     Indication: GLIOBLASTOMA MULTIFORME
     Dosage: INTRA-TUMORAL, CONT 4 DAY
     Route: 036
     Dates: start: 20080722, end: 20080726
  2. HYCAMTIN [Suspect]
     Dosage: 0.2ML PER HOUR TO 40ML
  3. ZOLOFT [Concomitant]
  4. DAPSONE [Concomitant]
  5. COZAAR [Concomitant]
  6. SPIRIVA [Concomitant]
  7. KEPPRA [Concomitant]
  8. ADVAIR DISKUS 100/50 [Concomitant]
  9. DEXAMETHASONE TAB [Concomitant]
  10. DIAZEPAM [Concomitant]

REACTIONS (3)
  - ASTHENIA [None]
  - FEELING ABNORMAL [None]
  - MENTAL STATUS CHANGES [None]
